FAERS Safety Report 8564371-7 (Version None)
Quarter: 2012Q3

REPORT INFORMATION
  Report Type: 
  Country: None (occurrence: None)
  Receive Date: 20120803
  Receipt Date: 20120730
  Transmission Date: 20120928
  Serious: Yes (Death, Hospitalization, Other)
  Sender: FDA-Public Use
  Company Number: US-ASTELLAS-2012US006611

PATIENT
  Sex: Female

DRUGS (1)
  1. TARCEVA [Suspect]
     Indication: PRODUCT USED FOR UNKNOWN INDICATION
     Dosage: UNK
     Route: 048

REACTIONS (7)
  - ARTHRALGIA [None]
  - HYPOTENSION [None]
  - PLEURAL EFFUSION [None]
  - BLOOD UREA INCREASED [None]
  - DISORIENTATION [None]
  - CONFUSIONAL STATE [None]
  - BLOOD CREATININE INCREASED [None]
